FAERS Safety Report 8999345 (Version 1)
Quarter: 2013Q1

REPORT INFORMATION
  Report Type: Report from Study
  Country: TR (occurrence: TR)
  Receive Date: 20130103
  Receipt Date: 20130103
  Transmission Date: 20140127
  Serious: Yes (Life-Threatening)
  Sender: FDA-Public Use
  Company Number: TR-PFIZER INC-2012332094

PATIENT
  Age: 48 Year
  Sex: Male

DRUGS (7)
  1. CYTARABINE [Suspect]
     Indication: CENTRAL NERVOUS SYSTEM LYMPHOMA
     Dosage: 1 G/M2 (1 H. INFUSION IN DAY 1 AND 2)
     Route: 042
  2. CYTARABINE [Suspect]
     Dosage: (70 MG VIA INTRATHECAL ROUTE IN DAY 1 AND 8)
     Route: 037
  3. IDARUBICIN HCL [Suspect]
     Indication: CENTRAL NERVOUS SYSTEM LYMPHOMA
     Dosage: 10 MG/M2 (DAY 1 AND 2)
  4. METHOTREXATE SODIUM [Suspect]
     Indication: CENTRAL NERVOUS SYSTEM LYMPHOMA
     Dosage: (3 G/M2 6 H. INFUSION IN DAY 3 WITH FOLINIC ACID RESCUE)
     Route: 042
  5. METHOTREXATE SODIUM [Suspect]
     Dosage: 12 MG METHOTREXATE VIA INTRATHECAL ROUTE IN DAY 1 AND 8)
     Route: 037
  6. DEXAMETHASONE SODIUM PHOSPHATE [Suspect]
     Indication: CENTRAL NERVOUS SYSTEM LYMPHOMA
     Dosage: 100 MG/M2 (12 H. INFUSION IN DAY 1, 2 AND 3)
     Route: 042
  7. RITUXIMAB [Suspect]
     Indication: CENTRAL NERVOUS SYSTEM LYMPHOMA
     Dosage: 375 MG/M2, DAY1

REACTIONS (1)
  - Bone marrow failure [Unknown]
